FAERS Safety Report 9056582 (Version 2)
Quarter: 2013Q1

REPORT INFORMATION
  Report Type: Spontaneous
  Country: JP (occurrence: JP)
  Receive Date: 20130204
  Receipt Date: 20130304
  Transmission Date: 20140127
  Serious: Yes (Hospitalization)
  Sender: FDA-Public Use
  Company Number: JP-ASTRAZENECA-2013SE01682

PATIENT
  Age: 78 Year
  Sex: Male
  Weight: 43 kg

DRUGS (6)
  1. CASODEX [Suspect]
     Indication: PROSTATE CANCER
     Route: 048
     Dates: start: 20121204, end: 20130107
  2. GONAX [Suspect]
     Indication: PROSTATE CANCER
     Route: 058
     Dates: start: 20121206, end: 20121206
  3. RANMARK [Suspect]
     Indication: METASTASES TO BONE
     Route: 058
     Dates: start: 20121219, end: 20121219
  4. GASMOTIN [Concomitant]
     Indication: GASTROENTERITIS
     Route: 048
     Dates: start: 20121213, end: 20130107
  5. ELSPRI [Concomitant]
     Indication: HYPOCALCAEMIA
     Route: 048
     Dates: start: 20121213, end: 20130107
  6. ONEALFA [Concomitant]
     Indication: HYPOCALCAEMIA
     Route: 048
     Dates: start: 20121213, end: 20130107

REACTIONS (1)
  - Rhabdomyolysis [Recovering/Resolving]
